FAERS Safety Report 9330798 (Version 1)
Quarter: 2013Q2

REPORT INFORMATION
  Report Type: Spontaneous
  Country: FR (occurrence: FR)
  Receive Date: 20130605
  Receipt Date: 20130605
  Transmission Date: 20140414
  Serious: Yes (Hospitalization)
  Sender: FDA-Public Use
  Company Number: FR-JNJFOC-20121107570

PATIENT
  Age: 58 Year
  Sex: Female

DRUGS (8)
  1. REMICADE [Suspect]
     Indication: PSORIATIC ARTHROPATHY
     Route: 042
     Dates: start: 20121005, end: 20121005
  2. REMICADE [Suspect]
     Indication: PSORIATIC ARTHROPATHY
     Route: 042
     Dates: end: 201003
  3. ROACTEMRA [Suspect]
     Indication: PSORIATIC ARTHROPATHY
     Route: 042
     Dates: start: 20130408
  4. ROACTEMRA [Suspect]
     Indication: PSORIATIC ARTHROPATHY
     Route: 042
     Dates: start: 201110
  5. ROACTEMRA [Suspect]
     Indication: PSORIATIC ARTHROPATHY
     Dosage: 12TH COURSE
     Route: 042
     Dates: start: 20121005, end: 20121005
  6. BI-PROFENID [Concomitant]
     Route: 065
  7. IXPRIM [Concomitant]
     Route: 065
  8. BETATOP [Concomitant]
     Route: 065

REACTIONS (8)
  - Angioedema [Not Recovered/Not Resolved]
  - Urticaria [Not Recovered/Not Resolved]
  - Interstitial lung disease [Unknown]
  - Dyspnoea [Not Recovered/Not Resolved]
  - Nausea [Unknown]
  - Paraesthesia [Unknown]
  - Erythema [Unknown]
  - Oedema peripheral [Unknown]
